FAERS Safety Report 9967613 (Version 1)
Quarter: 2014Q1

REPORT INFORMATION
  Report Type: Report from Study
  Country: US (occurrence: US)
  Receive Date: 20140305
  Receipt Date: 20140305
  Transmission Date: 20141002
  Serious: No
  Sender: FDA-Public Use
  Company Number: US-ABBVIE-13P-163-1139314-00

PATIENT
  Age: 22 Year
  Sex: Female

DRUGS (7)
  1. HUMIRA [Suspect]
     Indication: COLITIS ULCERATIVE
     Dates: start: 20130415, end: 201308
  2. HUMIRA [Suspect]
     Dates: start: 201308
  3. LIALDA [Concomitant]
     Indication: COLITIS ULCERATIVE
  4. 6 MP [Concomitant]
     Indication: COLITIS ULCERATIVE
     Dosage: 25MG DAILY
  5. VALACYCLOVIR HCL PHARMA PAC [Concomitant]
     Indication: ANTIVIRAL PROPHYLAXIS
     Dosage: 1MG DAILY
  6. LOESTRIN [Concomitant]
     Indication: CONTRACEPTION
     Dosage: 24MG DAILY
  7. CORTIFOAM [Concomitant]
     Indication: PROCTALGIA
     Dosage: TWICE DAILY ONCE IN MORNING AND ONCE AT BEDTIME

REACTIONS (1)
  - Drug ineffective [Not Recovered/Not Resolved]
